FAERS Safety Report 11664200 (Version 1)
Quarter: 2015Q4

REPORT INFORMATION
  Report Type: Spontaneous
  Country: US (occurrence: None)
  Receive Date: 20151026
  Receipt Date: 20151026
  Transmission Date: 20160304
  Serious: Yes (Life-Threatening, Hospitalization, Disabling)
  Sender: FDA-Public Use
  Company Number: None

PATIENT
  Age: 28 Year
  Sex: Female
  Weight: 68.04 kg

DRUGS (14)
  1. WHEELCHAIR [Concomitant]
     Active Substance: DEVICE
  2. DIAZEPAM. [Concomitant]
     Active Substance: DIAZEPAM
  3. ARM SLING [Concomitant]
  4. HAND SPLINT [Concomitant]
  5. VITAMIN C [Concomitant]
     Active Substance: ASCORBIC ACID
  6. IRON [Concomitant]
     Active Substance: IRON
  7. VITAMIN D [Concomitant]
     Active Substance: CHOLECALCIFEROL
  8. CANE [Concomitant]
  9. TYLENOL [Concomitant]
     Active Substance: ACETAMINOPHEN
  10. ORTHO CYCLEN [Suspect]
     Active Substance: ETHINYL ESTRADIOL\NORGESTIMATE
     Indication: CONTRACEPTION
     Dosage: 1 PILL
     Route: 048
     Dates: start: 20140727, end: 20140820
  11. METHYL FOLATE [Concomitant]
  12. KEPPRA [Concomitant]
     Active Substance: LEVETIRACETAM
  13. VITAMIN B [Concomitant]
     Active Substance: VITAMIN B
  14. FOLIC ACID. [Concomitant]
     Active Substance: FOLIC ACID

REACTIONS (4)
  - Cerebrovascular accident [None]
  - Headache [None]
  - Thrombosis [None]
  - Cerebral haemorrhage [None]

NARRATIVE: CASE EVENT DATE: 20140820
